FAERS Safety Report 18391863 (Version 1)
Quarter: 2020Q4

REPORT INFORMATION
  Report Type: Spontaneous
  Country: US (occurrence: US)
  Receive Date: 20201016
  Receipt Date: 20201016
  Transmission Date: 20210114
  Serious: No
  Sender: FDA-Public Use
  Company Number: US-MYLANLABS-2020M1085253

PATIENT
  Age: 80 Year
  Sex: Female

DRUGS (2)
  1. ACYCLOVIR OINTMENT USP, 5% [Suspect]
     Active Substance: ACYCLOVIR
     Dosage: EVERY 3 HOURS 6 TIMES A DAY FOR 7 DAYS
     Route: 061
     Dates: start: 20201006
  2. ACYCLOVIR OINTMENT USP, 5% [Suspect]
     Active Substance: ACYCLOVIR
     Indication: ORAL HERPES
     Dosage: EVERY 3 HOURS 6 TIMES A DAY FOR 7 DAYS
     Route: 061
     Dates: start: 20201002

REACTIONS (2)
  - Product physical consistency issue [Not Recovered/Not Resolved]
  - Wrong technique in product usage process [Not Recovered/Not Resolved]

NARRATIVE: CASE EVENT DATE: 20201002
